FAERS Safety Report 16298338 (Version 2)
Quarter: 2019Q3

REPORT INFORMATION
  Report Type: Spontaneous
  Country: US (occurrence: US)
  Receive Date: 20190510
  Receipt Date: 20190703
  Transmission Date: 20191004
  Serious: Yes (Other)
  Sender: FDA-Public Use
  Company Number: US-JNJFOC-20190500653

PATIENT
  Age: 34 Year
  Sex: Female
  Weight: 63.56 kg

DRUGS (1)
  1. TREMFYA [Suspect]
     Active Substance: GUSELKUMAB
     Indication: PSORIASIS
     Route: 058
     Dates: start: 20171031, end: 20181218

REACTIONS (5)
  - Blindness [Recovered/Resolved]
  - Intracranial pressure increased [Recovering/Resolving]
  - Muscle twitching [Recovered/Resolved]
  - Papilloedema [Recovering/Resolving]
  - Headache [Recovering/Resolving]

NARRATIVE: CASE EVENT DATE: 201712
